FAERS Safety Report 11128067 (Version 1)
Quarter: 2015Q2

REPORT INFORMATION
  Report Type: Spontaneous
  Country: CH (occurrence: CH)
  Receive Date: 20150521
  Receipt Date: 20150521
  Transmission Date: 20150821
  Serious: Yes (Hospitalization)
  Sender: FDA-Public Use
  Company Number: CH-PFIZER INC-2015170434

PATIENT
  Age: 70 Year
  Sex: Male

DRUGS (7)
  1. COVERSUM [Concomitant]
     Active Substance: PERINDOPRIL
     Dosage: UNK
     Dates: start: 201406
  2. DILZEM [Concomitant]
     Active Substance: DILTIAZEM
     Dosage: UNK
     Dates: start: 201406
  3. JANUMET [Concomitant]
     Active Substance: METFORMIN HYDROCHLORIDE\SITAGLIPTIN PHOSPHATE
     Dosage: UNK
  4. XARELTO [Interacting]
     Active Substance: RIVAROXABAN
     Dosage: 20 MG, DAILY
     Route: 048
     Dates: start: 201406
  5. AMIODARONE [Interacting]
     Active Substance: AMIODARONE
     Dosage: 150 MG, SINGLE
     Route: 042
     Dates: start: 20141015, end: 20141015
  6. DIAMICRON [Concomitant]
     Active Substance: GLICLAZIDE
     Dosage: UNK
  7. AMIODARONE HCL [Suspect]
     Active Substance: AMIODARONE HYDROCHLORIDE
     Dosage: 200 MG, DAILY
     Route: 048
     Dates: start: 20141015, end: 20141030

REACTIONS (2)
  - Drug interaction [Unknown]
  - Pericardial haemorrhage [Recovered/Resolved]

NARRATIVE: CASE EVENT DATE: 20141015
